FAERS Safety Report 4832550-8 (Version None)
Quarter: 2005Q4

REPORT INFORMATION
  Report Type: 
  Country: None (occurrence: None)
  Receive Date: 20051115
  Receipt Date: 20051109
  Transmission Date: 20060501
  Serious: Yes (Hospitalization)
  Sender: FDA-Public Use
  Company Number: 200512562BCC

PATIENT
  Age: 72 Year
  Sex: Female
  Weight: 90.7194 kg

DRUGS (18)
  1. PHILLIPS' LAXATIVE DIETARY SUPPLEMENT CAPLETS (LAXATIVES) [Suspect]
     Indication: CONSTIPATION
     Dosage: 500 MG, ONCE, ORAL
     Route: 048
     Dates: start: 20050520
  2. LEVOXYL [Concomitant]
     Dates: end: 20050525
  3. PRILOSEC [Concomitant]
  4. LISINOPRIL [Concomitant]
  5. CADUET [Concomitant]
  6. FUROSEMIDE [Concomitant]
  7. GLUCOTROL XL [Concomitant]
  8. AVANDIA [Concomitant]
  9. HYDROCO AP [Concomitant]
  10. LEXAPRO [Concomitant]
  11. XALATAN [Concomitant]
  12. LORATADINE [Concomitant]
  13. CALCIUM WITH VITAMIN D [Concomitant]
  14. SUNDOWN MULTIVITAMIN [Concomitant]
  15. LANTUS [Concomitant]
  16. DETROL [Concomitant]
  17. AREDS [Concomitant]
  18. CYMBALTA [Suspect]
     Dates: end: 20050525

REACTIONS (5)
  - ABDOMINAL PAIN UPPER [None]
  - ERYTHEMA [None]
  - LARGE INTESTINAL HAEMORRHAGE [None]
  - MUSCLE SPASMS [None]
  - THINKING ABNORMAL [None]
